FAERS Safety Report 4989900-1 (Version None)
Quarter: 2006Q2

REPORT INFORMATION
  Report Type: 
  Country: None (occurrence: None)
  Receive Date: 20060425
  Receipt Date: 20060413
  Transmission Date: 20061013
  Serious: Yes (Life-Threatening)
  Sender: FDA-Public Use
  Company Number: 200610076

PATIENT
  Age: 36 Year
  Sex: Male
  Weight: 67 kg

DRUGS (5)
  1. ALBUTEIN [Suspect]
     Dosage: 500 ML DAILY IV
     Route: 042
  2. TORADOL [Suspect]
     Dosage: 60 MG DAILY
  3. SODIUM BICARBONATE [Concomitant]
  4. HYDROMORPHONE HCL [Concomitant]
  5. CEFAZOLIN [Concomitant]

REACTIONS (4)
  - HYPOTENSION [None]
  - INFUSION RELATED REACTION [None]
  - RESPIRATORY DISTRESS [None]
  - TACHYCARDIA [None]
